FAERS Safety Report 6928309-8 (Version None)
Quarter: 2010Q3

REPORT INFORMATION
  Report Type: 
  Country: None (occurrence: None)
  Receive Date: 20100817
  Receipt Date: 20100809
  Transmission Date: 20110219
  Serious: Yes (Death)
  Sender: FDA-Public Use
  Company Number: JP-ROCHE-720882

PATIENT
  Sex: Male
  Weight: 41 kg

DRUGS (4)
  1. TOCILIZUMAB [Suspect]
     Indication: PANCREATIC CARCINOMA NON-RESECTABLE
     Route: 042
     Dates: start: 20100730
  2. GEMZAR [Suspect]
     Indication: PANCREATIC CARCINOMA NON-RESECTABLE
     Route: 042
     Dates: start: 20100730
  3. LASIX [Suspect]
     Indication: OEDEMA PERIPHERAL
     Dosage: NOTE: AFTER THE LUNCH THE MORNING.
     Route: 048
     Dates: start: 20100730, end: 20100804
  4. LASIX [Suspect]
     Dosage: NOTE: AFTER THE LUNCH THE MORNING
     Route: 048
     Dates: start: 20100805

REACTIONS (1)
  - DEATH [None]
